FAERS Safety Report 8166716-9 (Version None)
Quarter: 2012Q1

REPORT INFORMATION
  Report Type: 
  Country: None (occurrence: None)
  Receive Date: 20120103
  Receipt Date: 20111020
  Transmission Date: 20120608
  Serious: No
  Sender: FDA-Public Use
  Company Number: AE-2011-002530

PATIENT
  Age: 63 Year
  Sex: Female
  Weight: 90.7194 kg

DRUGS (17)
  1. PROMETRIUM [Concomitant]
  2. INCIVEK [Suspect]
     Dosage: (3 TABS B.I.D.),ORAL
     Route: 048
     Dates: start: 20110922
  3. VITAMIN D [Concomitant]
  4. MULTIVITAMIN [Concomitant]
  5. PEGASYS [Concomitant]
  6. RIBAVIRIN [Concomitant]
  7. PREMARIN [Concomitant]
  8. FLECAINIDE ACETATE [Concomitant]
  9. CATAPRES [Concomitant]
  10. ASPIRIN [Concomitant]
  11. COLACE (DOCUSATE SODIUM) [Concomitant]
  12. LOTREL [Concomitant]
  13. CATAPRES-TTS-1 [Concomitant]
  14. LEVOXYL [Concomitant]
  15. CRESTOR [Concomitant]
  16. POTASSIUM CHLORIDE [Concomitant]
  17. LASIX [Concomitant]

REACTIONS (3)
  - PHOTOPHOBIA [None]
  - HAEMATOCRIT DECREASED [None]
  - CONSTIPATION [None]
